FAERS Safety Report 25352719 (Version 1)
Quarter: 2025Q2

REPORT INFORMATION
  Report Type: Spontaneous
  Country: US (occurrence: None)
  Receive Date: 20250523
  Receipt Date: 20250523
  Transmission Date: 20250716
  Serious: Yes (Other)
  Sender: FDA-CTU
  Company Number: None

PATIENT
  Age: 72 Year
  Sex: Female
  Weight: 72 kg

DRUGS (10)
  1. OZEMPIC [Suspect]
     Active Substance: SEMAGLUTIDE
     Indication: Movement disorder
     Route: 058
     Dates: start: 20250318, end: 20250331
  2. QULIPTA [Concomitant]
     Active Substance: ATOGEPANT
  3. gabapentin, [Concomitant]
  4. spironolactone, [Concomitant]
  5. levothyroxine, [Concomitant]
  6. OLMESARTAN [Concomitant]
     Active Substance: OLMESARTAN
  7. VITAMIN C [Concomitant]
     Active Substance: ASCORBIC ACID
  8. FISH OIL [Concomitant]
     Active Substance: FISH OIL
  9. VITAMINS NOS [Concomitant]
     Active Substance: VITAMINS
  10. VITAMIN D [Concomitant]
     Active Substance: VITAMIN D NOS

REACTIONS (4)
  - Migraine [None]
  - Dizziness [None]
  - Diplopia [None]
  - Eye pain [None]

NARRATIVE: CASE EVENT DATE: 20250318
